FAERS Safety Report 20653781 (Version 1)
Quarter: 2022Q1

REPORT INFORMATION
  Report Type: Spontaneous
  Country: CA (occurrence: CA)
  Receive Date: 20220330
  Receipt Date: 20220330
  Transmission Date: 20220423
  Serious: Yes (Other)
  Sender: FDA-Public Use
  Company Number: CA-SA-SAC20220328000254

PATIENT
  Age: 42 Year

DRUGS (1)
  1. ZANTAC [Suspect]
     Active Substance: RANITIDINE HYDROCHLORIDE
     Dosage: UNK
     Dates: start: 2010

REACTIONS (7)
  - Gastrooesophageal cancer [Unknown]
  - Pain [Unknown]
  - Metastases to bone [Unknown]
  - Metastases to peritoneum [Unknown]
  - Metastases to liver [Unknown]
  - Metastases to pelvis [Unknown]
  - Illness [Unknown]

NARRATIVE: CASE EVENT DATE: 20180712
